FAERS Safety Report 10784654 (Version 1)
Quarter: 2015Q1

REPORT INFORMATION
  Report Type: Spontaneous
  Country: US (occurrence: US)
  Receive Date: 20150211
  Receipt Date: 20150211
  Transmission Date: 20150721
  Serious: Yes (Other)
  Sender: FDA-Public Use
  Company Number: US-AMGEN-USASP2015012582

PATIENT
  Age: 59 Year
  Sex: Female

DRUGS (1)
  1. ENBREL [Suspect]
     Active Substance: ETANERCEPT
     Indication: ANKYLOSING SPONDYLITIS
     Dosage: UNK UNK, QWK
     Route: 065
     Dates: start: 20050301

REACTIONS (4)
  - Injection site pruritus [Not Recovered/Not Resolved]
  - Influenza [Recovered/Resolved]
  - Injection site erythema [Not Recovered/Not Resolved]
  - Spinal operation [Unknown]

NARRATIVE: CASE EVENT DATE: 201412
